FAERS Safety Report 7492534-0 (Version None)
Quarter: 2011Q2

REPORT INFORMATION
  Report Type: 
  Country: None (occurrence: None)
  Receive Date: 20110519
  Receipt Date: 20110513
  Transmission Date: 20111010
  Serious: Yes (Death, Hospitalization)
  Sender: FDA-Public Use
  Company Number: ES-PFIZER INC-2011104430

PATIENT
  Age: 56 Year
  Sex: Male

DRUGS (3)
  1. LINEZOLID [Suspect]
     Dosage: UNK
  2. MEROPENEM [Concomitant]
     Dosage: UNK
  3. TOBRAMYCIN [Concomitant]

REACTIONS (1)
  - PATHOGEN RESISTANCE [None]
